FAERS Safety Report 4781184-2 (Version None)
Quarter: 2005Q3

REPORT INFORMATION
  Report Type: 
  Country: None (occurrence: None)
  Receive Date: 20050928
  Receipt Date: 20050921
  Transmission Date: 20060218
  Serious: Yes (Other)
  Sender: FDA-Public Use
  Company Number: 2005UW14011

PATIENT
  Age: 32 Year
  Sex: Male
  Weight: 86.2 kg

DRUGS (1)
  1. SEROQUEL [Suspect]
     Route: 048

REACTIONS (2)
  - ASTHENIA [None]
  - HEART RATE DECREASED [None]
